FAERS Safety Report 24015981 (Version 3)
Quarter: 2024Q3

REPORT INFORMATION
  Report Type: Spontaneous
  Country: US (occurrence: US)
  Receive Date: 20240626
  Receipt Date: 20240920
  Transmission Date: 20241016
  Serious: Yes (Hospitalization, Other)
  Sender: BRISTOL MYERS SQUIBB
  Company Number: US-BRISTOL-MYERS SQUIBB COMPANY-2024-101767

PATIENT
  Age: 80 Year
  Sex: Female
  Weight: 76.2 kg

DRUGS (5)
  1. REVLIMID [Suspect]
     Active Substance: LENALIDOMIDE
     Indication: Plasma cell myeloma
     Dosage: DAILY X 14 DAYS ON AND 7 DAYS OF
     Route: 048
     Dates: start: 20240127
  2. REVLIMID [Suspect]
     Active Substance: LENALIDOMIDE
  3. REVLIMID [Suspect]
     Active Substance: LENALIDOMIDE
  4. REVLIMID [Suspect]
     Active Substance: LENALIDOMIDE
     Route: 048
     Dates: start: 20240518, end: 20240717
  5. REVLIMID [Suspect]
     Active Substance: LENALIDOMIDE
     Route: 048
     Dates: end: 20240712

REACTIONS (10)
  - Plasma cell myeloma recurrent [Not Recovered/Not Resolved]
  - Balance disorder [Unknown]
  - Dysstasia [Recovering/Resolving]
  - Fall [Not Recovered/Not Resolved]
  - Off label use [Unknown]
  - Staphylococcal infection [Recovering/Resolving]
  - White blood cell count decreased [Recovering/Resolving]
  - Platelet count decreased [Recovering/Resolving]
  - Thoracic vertebral fracture [Unknown]
  - Plasmacytoma [Unknown]

NARRATIVE: CASE EVENT DATE: 20240623
